FAERS Safety Report 14927000 (Version 1)
Quarter: 2018Q2

REPORT INFORMATION
  Report Type: Spontaneous
  Country: CA (occurrence: CA)
  Receive Date: 20180523
  Receipt Date: 20180523
  Transmission Date: 20180711
  Serious: Yes (Other)
  Sender: FDA-Public Use
  Company Number: CA-ABBVIE-17K-028-1851269-00

PATIENT
  Age: 60 Year
  Sex: Female

DRUGS (3)
  1. XELJANZ [Concomitant]
     Active Substance: TOFACITINIB CITRATE
     Indication: PRODUCT USED FOR UNKNOWN INDICATION
  2. ENBREL [Suspect]
     Active Substance: ETANERCEPT
     Indication: RHEUMATOID ARTHRITIS
     Route: 065
     Dates: start: 2013, end: 2016
  3. HUMIRA [Suspect]
     Active Substance: ADALIMUMAB
     Indication: RHEUMATOID ARTHRITIS
     Route: 058
     Dates: start: 201601

REACTIONS (13)
  - Fatigue [Unknown]
  - Abdominal pain upper [Unknown]
  - Faeces soft [Not Recovered/Not Resolved]
  - Headache [Unknown]
  - Muscle spasms [Unknown]
  - Drug hypersensitivity [Unknown]
  - Synovitis [Unknown]
  - Gait disturbance [Unknown]
  - Drug intolerance [Unknown]
  - Mobility decreased [Unknown]
  - Arthralgia [Unknown]
  - Nausea [Unknown]
  - Peripheral swelling [Unknown]

NARRATIVE: CASE EVENT DATE: 2016
